FAERS Safety Report 4533228-0 (Version None)
Quarter: 2004Q4

REPORT INFORMATION
  Report Type: 
  Country: None (occurrence: None)
  Receive Date: 20041107
  Receipt Date: 20040114
  Transmission Date: 20050328
  Serious: No
  Sender: FDA-Public Use
  Company Number: 700332

PATIENT
  Sex: Male
  Weight: 95.2554 kg

DRUGS (5)
  1. DIANEAL [Suspect]
     Indication: PERITONEAL DIALYSIS
     Dosage: UNKNOWN
     Route: 065
  2. HOMECHOICE AUTOMATED PD SYSTEM 115 VOLT [Concomitant]
  3. CAPD TRANSFER SET [Concomitant]
  4. DRAINAGE BAG [Concomitant]
  5. HOMECHOICE APD SET W/CASSETTE 4 PRONG [Concomitant]

REACTIONS (1)
  - PERITONITIS [None]
